FAERS Safety Report 9894678 (Version 2)
Quarter: 2014Q1

REPORT INFORMATION
  Report Type: Spontaneous
  Country: US (occurrence: US)
  Receive Date: 20140213
  Receipt Date: 20140227
  Transmission Date: 20141002
  Serious: Yes (Death, Life-Threatening, Hospitalization, Other)
  Sender: FDA-Public Use
  Company Number: US-MERCK-1402USA005841

PATIENT
  Sex: Male
  Weight: 77.98 kg

DRUGS (1)
  1. JANUVIA [Suspect]
     Indication: TYPE 2 DIABETES MELLITUS
     Dosage: 100 MG, QD
     Route: 048
     Dates: start: 20100921, end: 20110814

REACTIONS (25)
  - Pancreatic carcinoma [Fatal]
  - Metastases to liver [Fatal]
  - Intestinal obstruction [Not Recovered/Not Resolved]
  - Pancreatic mass [Not Recovered/Not Resolved]
  - Inguinal hernia [Unknown]
  - Atrial fibrillation [Unknown]
  - Pneumonia [Unknown]
  - Hyponatraemia [Unknown]
  - Hypomagnesaemia [Unknown]
  - Gastrooesophageal reflux disease [Unknown]
  - Spinal osteoarthritis [Unknown]
  - Hepatic lesion [Unknown]
  - Hiatus hernia [Unknown]
  - Arteriosclerosis [Unknown]
  - Pericardial effusion [Unknown]
  - Renal failure acute [Unknown]
  - Atrial fibrillation [Unknown]
  - Tachycardia induced cardiomyopathy [Unknown]
  - Hypertension [Unknown]
  - Hyperadrenalism [Unknown]
  - Vascular calcification [Unknown]
  - Hyperlipidaemia [Unknown]
  - Chronic hepatitis [Not Recovered/Not Resolved]
  - Alcoholism [Unknown]
  - Transient ischaemic attack [Unknown]
